FAERS Safety Report 5232429-6 (Version None)
Quarter: 2007Q1

REPORT INFORMATION
  Report Type: 
  Country: None (occurrence: None)
  Receive Date: 20070205
  Receipt Date: 20070118
  Transmission Date: 20070707
  Serious: Yes (Life-Threatening, Hospitalization)
  Sender: FDA-Public Use
  Company Number: DSA_29259_2007

PATIENT
  Age: 49 Year
  Sex: Female

DRUGS (3)
  1. TAVOR            /00273201/ [Suspect]
     Dosage: DF ONCE PO
     Route: 048
     Dates: start: 20060420, end: 20060420
  2. AMITRIPTYLINE HCL [Suspect]
     Dosage: DF ONCE PO
     Route: 048
     Dates: start: 20060420, end: 20060420
  3. ROHYPNOL [Suspect]
     Dosage: DF ONCE PO
     Route: 048
     Dates: start: 20060420, end: 20060420

REACTIONS (9)
  - AGITATION [None]
  - COMA [None]
  - HALLUCINATION [None]
  - MULTIPLE DRUG OVERDOSE INTENTIONAL [None]
  - PNEUMONIA [None]
  - PULMONARY EMBOLISM [None]
  - RHABDOMYOLYSIS [None]
  - SUICIDE ATTEMPT [None]
  - TACHYCARDIA [None]
